FAERS Safety Report 15311601 (Version 4)
Quarter: 2019Q1

REPORT INFORMATION
  Report Type: Report from Study
  Country: IN (occurrence: IN)
  Receive Date: 20180823
  Receipt Date: 20190320
  Transmission Date: 20190417
  Serious: Yes (Life-Threatening, Hospitalization)
  Sender: FDA-Public Use
  Company Number: IN-AMGEN-INDSP2018062186

PATIENT
  Age: 62 Year
  Sex: Male

DRUGS (2)
  1. VECTIBIX [Suspect]
     Active Substance: PANITUMUMAB
     Indication: RECTAL CANCER
     Dosage: 300 MG, CYCLICAL (1 VIAL)
     Route: 042
     Dates: start: 20170926, end: 2017
  2. VECTIBIX [Suspect]
     Active Substance: PANITUMUMAB
     Dosage: 100 MG, CYCLICAL
     Route: 042
     Dates: start: 20180409

REACTIONS (5)
  - Diarrhoea [Unknown]
  - Weight decreased [Unknown]
  - Drug ineffective [Unknown]
  - Dehydration [Unknown]
  - Asthenia [Unknown]

NARRATIVE: CASE EVENT DATE: 2017
